FAERS Safety Report 6997942-X (Version None)
Quarter: 2010Q3

REPORT INFORMATION
  Report Type: 
  Country: None (occurrence: None)
  Receive Date: 20100902
  Receipt Date: 20100622
  Transmission Date: 20110219
  Serious: Yes (Other)
  Sender: FDA-Public Use
  Company Number: 238538USA

PATIENT
  Sex: Male

DRUGS (1)
  1. PRAMIPEXOLE DIHYDROCHLORIDE [Suspect]
     Dosage: 6 MG (1.5 MG, 4 IN 1 D), ORAL; STOPPED
     Route: 048

REACTIONS (5)
  - DIZZINESS [None]
  - DYSARTHRIA [None]
  - GAIT DISTURBANCE [None]
  - PARALYSIS [None]
  - VISION BLURRED [None]
